FAERS Safety Report 21802680 (Version 1)
Quarter: 2022Q4

REPORT INFORMATION
  Report Type: Spontaneous
  Country: DE (occurrence: DE)
  Receive Date: 20221231
  Receipt Date: 20221231
  Transmission Date: 20230113
  Serious: Yes (Other)
  Sender: FDA-Public Use
  Company Number: DE-AMGEN-DEUSP2022223525

PATIENT
  Sex: Male

DRUGS (1)
  1. REPATHA [Suspect]
     Active Substance: EVOLOCUMAB
     Indication: Product used for unknown indication
     Dosage: 140 MILLIGRAM, EVERY 3 TO 4 WEEKS
     Route: 065
     Dates: end: 20221117

REACTIONS (3)
  - Retinal artery occlusion [Unknown]
  - Arthralgia [Unknown]
  - Off label use [Unknown]
